FAERS Safety Report 12376346 (Version 1)
Quarter: 2016Q2

REPORT INFORMATION
  Report Type: Spontaneous
  Country: US (occurrence: None)
  Receive Date: 20160516
  Receipt Date: 20160516
  Transmission Date: 20160815
  Serious: Yes (Other)
  Sender: FDA-Public Use
  Company Number: None

PATIENT
  Age: 62 Year
  Sex: Male

DRUGS (18)
  1. MEGACE ES [Concomitant]
     Active Substance: MEGESTROL ACETATE
  2. ONDANSETRON [Concomitant]
     Active Substance: ONDANSETRON
  3. COLCHICINE. [Concomitant]
     Active Substance: COLCHICINE
  4. CILOSTAZOL. [Concomitant]
     Active Substance: CILOSTAZOL
  5. ZOFRAN [Concomitant]
     Active Substance: ONDANSETRON HYDROCHLORIDE
  6. POTASSIUM [Concomitant]
     Active Substance: POTASSIUM
  7. SALSALATE. [Concomitant]
     Active Substance: SALSALATE
  8. PREDNISONE. [Concomitant]
     Active Substance: PREDNISONE
  9. DILAUDID [Concomitant]
     Active Substance: HYDROMORPHONE HYDROCHLORIDE
  10. ZYTIGA [Suspect]
     Active Substance: ABIRATERONE ACETATE
     Indication: PROSTATE CANCER
     Route: 048
     Dates: start: 20160106, end: 20160509
  11. LASIX [Concomitant]
     Active Substance: FUROSEMIDE
  12. AMITRIPTYLIN [Concomitant]
     Active Substance: AMITRIPTYLINE
  13. CYCOBENZAPR [Concomitant]
  14. TEKTURNA [Concomitant]
     Active Substance: ALISKIREN HEMIFUMARATE
  15. HYDROCO/APAP [Concomitant]
     Active Substance: ACETAMINOPHEN\HYDROCODONE
  16. PROMETHAZINE [Concomitant]
     Active Substance: PROMETHAZINE\PROMETHAZINE HYDROCHLORIDE
  17. AOTOS [Concomitant]
  18. REMERON [Concomitant]
     Active Substance: MIRTAZAPINE

REACTIONS (1)
  - Drug ineffective [None]

NARRATIVE: CASE EVENT DATE: 201605
